FAERS Safety Report 12299210 (Version 4)
Quarter: 2016Q3

REPORT INFORMATION
  Report Type: Spontaneous
  Country: JP (occurrence: JP)
  Receive Date: 20160425
  Receipt Date: 20160830
  Transmission Date: 20161109
  Serious: Yes (Hospitalization, Other)
  Sender: FDA-Public Use
  Company Number: PHJP2016JP010131

PATIENT
  Age: 81 Year
  Sex: Male

DRUGS (2)
  1. TASIGNA [Suspect]
     Active Substance: NILOTINIB
     Dosage: 600 MG, QD
     Route: 048
  2. TASIGNA [Suspect]
     Active Substance: NILOTINIB
     Indication: CHRONIC MYELOID LEUKAEMIA
     Dosage: 800 MG, QD
     Route: 048
     Dates: start: 20111025

REACTIONS (8)
  - Carotid artery stenosis [Unknown]
  - Cerebral artery stenosis [Unknown]
  - Second primary malignancy [Unknown]
  - Vertebral artery occlusion [Unknown]
  - Gastrointestinal haemorrhage [Recovered/Resolved]
  - Bladder cancer [Unknown]
  - Cardiovascular disorder [Unknown]
  - Cerebral infarction [Recovered/Resolved]

NARRATIVE: CASE EVENT DATE: 20151220
